FAERS Safety Report 4512122-5 (Version None)
Quarter: 2004Q4

REPORT INFORMATION
  Report Type: 
  Country: None (occurrence: None)
  Receive Date: 20041129
  Receipt Date: 20041118
  Transmission Date: 20050328
  Serious: Yes (Hospitalization)
  Sender: FDA-Public Use
  Company Number: DE-ROCHE-386561

PATIENT
  Age: 53 Year
  Sex: Male
  Weight: 80 kg

DRUGS (11)
  1. DACLIZUMAB [Suspect]
     Route: 042
     Dates: start: 20041021
  2. MYCOPHENOLATE MOFETIL [Suspect]
     Route: 048
     Dates: start: 20041022
  3. TACROLIMUS [Suspect]
     Route: 048
     Dates: start: 20041022
  4. URBASON [Suspect]
     Route: 042
     Dates: start: 20041021
  5. DIFLUCAN [Concomitant]
     Dosage: DOSE REPORTED AS 1-0-0
  6. VALCYTE [Concomitant]
     Dosage: DOSE REPORTED AS 1-0-0
  7. CORDAREX [Concomitant]
     Dosage: DOSE REPORTED AS 1-0-0
  8. PRAVASIN [Concomitant]
     Dosage: DOSE REPORTED AS 0-0-0-1
  9. BELOC-ZOK MITE [Concomitant]
     Dosage: DOSE REPORTED AS 1/2-0-1/2
  10. CORVATON [Concomitant]
     Dosage: DOSE REPORTED AS 0-0-1
  11. LIQUAEMIN INJ [Concomitant]

REACTIONS (3)
  - POST PROCEDURAL COMPLICATION [None]
  - RETROPERITONEAL HAEMATOMA [None]
  - SUBCUTANEOUS ABSCESS [None]
